FAERS Safety Report 18980060 (Version 1)
Quarter: 2021Q1

REPORT INFORMATION
  Report Type: Report from Study
  Country: US (occurrence: US)
  Receive Date: 20210308
  Receipt Date: 20210308
  Transmission Date: 20210420
  Serious: Yes (Hospitalization, Other)
  Sender: FDA-Public Use
  Company Number: US-GILEAD-2021-0518727

PATIENT
  Age: 42 Year
  Sex: Male

DRUGS (2)
  1. AZTREONAM LYSINE [Suspect]
     Active Substance: AZTREONAM LYSINE
     Indication: CYSTIC FIBROSIS
     Dosage: 75 MG, TID
     Route: 065
     Dates: start: 20190314
  2. OXYGEN. [Concomitant]
     Active Substance: OXYGEN

REACTIONS (5)
  - Endotracheal intubation [Unknown]
  - Dyspnoea [Not Recovered/Not Resolved]
  - Cystic fibrosis [Unknown]
  - Cystic fibrosis respiratory infection suppression [Unknown]
  - Malaise [Unknown]

NARRATIVE: CASE EVENT DATE: 202101
